FAERS Safety Report 7887747-X (Version None)
Quarter: 2011Q4

REPORT INFORMATION
  Report Type: 
  Country: None (occurrence: None)
  Receive Date: 20111101
  Receipt Date: 20111024
  Transmission Date: 20120403
  Serious: Yes (Hospitalization)
  Sender: FDA-Public Use
  Company Number: 2011SP017555

PATIENT
  Age: 17 Year
  Sex: Female
  Weight: 52.1637 kg

DRUGS (7)
  1. LORAZEPAM [Concomitant]
  2. NUVARING [Suspect]
     Indication: CONTRACEPTION
     Dosage: ;QM;VAG
     Route: 067
     Dates: start: 20070501, end: 20090419
  3. NUVARING [Suspect]
     Indication: MENSTRUATION IRREGULAR
     Dosage: ;QM;VAG
     Route: 067
     Dates: start: 20070501, end: 20090419
  4. NUVARING [Suspect]
     Indication: DYSMENORRHOEA
     Dosage: ;QM;VAG
     Route: 067
     Dates: start: 20070501, end: 20090419
  5. NUVARING [Suspect]
     Indication: OVARIAN CYST
     Dosage: ;QM;VAG
     Route: 067
     Dates: start: 20070501, end: 20090419
  6. SERTRALINE HYDROCHLORIDE [Concomitant]
  7. VYVANSE [Concomitant]

REACTIONS (22)
  - HYPERCOAGULATION [None]
  - HAND FRACTURE [None]
  - PLEURAL EFFUSION [None]
  - FALSE POSITIVE INVESTIGATION RESULT [None]
  - VULVOVAGINAL CANDIDIASIS [None]
  - ANXIETY [None]
  - INAPPROPRIATE SCHEDULE OF DRUG ADMINISTRATION [None]
  - NASOPHARYNGITIS [None]
  - ABDOMINAL PAIN [None]
  - FIBRIN D DIMER INCREASED [None]
  - RETINAL ARTERIOVENOUS MALFORMATION [None]
  - VAGINAL HAEMORRHAGE [None]
  - ATELECTASIS [None]
  - HAEMOGLOBIN DECREASED [None]
  - HUMAN PAPILLOMA VIRUS TEST POSITIVE [None]
  - CERVICAL DYSPLASIA [None]
  - PULMONARY EMBOLISM [None]
  - CERVIX CARCINOMA [None]
  - HEAD INJURY [None]
  - UTERINE HAEMORRHAGE [None]
  - WITHDRAWAL BLEED [None]
  - VICTIM OF SEXUAL ABUSE [None]
